FAERS Safety Report 6938489-6 (Version None)
Quarter: 2010Q3

REPORT INFORMATION
  Report Type: 
  Country: None (occurrence: None)
  Receive Date: 20100824
  Receipt Date: 20100810
  Transmission Date: 20110219
  Serious: Yes (Other)
  Sender: FDA-Public Use
  Company Number: DE-ELI_LILLY_AND_COMPANY-DE201008004259

PATIENT
  Age: 80 Year
  Sex: Female

DRUGS (3)
  1. DULOXETINE HYDROCHLORIDE [Suspect]
     Indication: INCONTINENCE
     Dosage: UNK, UNKNOWN
     Route: 065
  2. ASPIRIN [Concomitant]
  3. TROMCARDIN [Concomitant]

REACTIONS (2)
  - COLITIS [None]
  - WEIGHT DECREASED [None]
